FAERS Safety Report 25945438 (Version 1)
Quarter: 2025Q4

REPORT INFORMATION
  Report Type: Spontaneous
  Country: US (occurrence: None)
  Receive Date: 20251021
  Receipt Date: 20251021
  Transmission Date: 20260118
  Serious: Yes (Hospitalization)
  Sender: FDA-CTU
  Company Number: None

PATIENT
  Age: 51 Year
  Sex: Female
  Weight: 68.4 kg

DRUGS (1)
  1. FASENRA [Suspect]
     Active Substance: BENRALIZUMAB
     Dosage: OTHER FREQUENCY : INJECT EVERY MONTH;?
     Route: 058
     Dates: start: 20251015, end: 20251021

REACTIONS (6)
  - Illness [None]
  - Gait disturbance [None]
  - Headache [None]
  - Therapy cessation [None]
  - Nausea [None]
  - Blood pressure increased [None]

NARRATIVE: CASE EVENT DATE: 20251015
